FAERS Safety Report 7233917-3 (Version None)
Quarter: 2011Q1

REPORT INFORMATION
  Report Type: 
  Country: None (occurrence: None)
  Receive Date: 20110119
  Receipt Date: 20100311
  Transmission Date: 20110831
  Serious: Yes (Hospitalization, Other)
  Sender: FDA-Public Use
  Company Number: US-TEVA-227516USA

PATIENT
  Sex: Female

DRUGS (1)
  1. COPAXONE [Suspect]
     Indication: MULTIPLE SCLEROSIS
     Route: 058
     Dates: start: 20050101, end: 20090901

REACTIONS (6)
  - APHASIA [None]
  - MIGRAINE [None]
  - DRUG INEFFECTIVE [None]
  - ABASIA [None]
  - DEMYELINATION [None]
  - AKINESIA [None]
